FAERS Safety Report 6692746-X (Version None)
Quarter: 2010Q2

REPORT INFORMATION
  Report Type: 
  Country: None (occurrence: None)
  Receive Date: 20100422
  Receipt Date: 20100415
  Transmission Date: 20101027
  Serious: Yes (Hospitalization)
  Sender: FDA-Public Use
  Company Number: PHHY2010MX25135

PATIENT
  Age: 62 Year
  Sex: Female

DRUGS (3)
  1. CARBAMAZEPINE [Suspect]
     Dosage: UNK
     Dates: start: 20100316
  2. LUDIOMIL [Suspect]
     Indication: DEPRESSION
     Dosage: (1 TABLET /25 MG) PER DAY
     Dates: start: 20090401, end: 20100310
  3. LUDIOMIL [Suspect]
     Dosage: UNK
     Dates: start: 20100317

REACTIONS (3)
  - HYPERSENSITIVITY [None]
  - RASH [None]
  - URTICARIA [None]
